FAERS Safety Report 6408890-8 (Version None)
Quarter: 2009Q4

REPORT INFORMATION
  Report Type: 
  Country: None (occurrence: None)
  Receive Date: 20091021
  Receipt Date: 20091015
  Transmission Date: 20100525
  Serious: Yes (Hospitalization)
  Sender: FDA-Public Use
  Company Number: FR-MERCK-0910FRA00062

PATIENT
  Age: 67 Year
  Sex: Male

DRUGS (8)
  1. FOSAMAX [Suspect]
     Route: 048
     Dates: start: 20090313, end: 20090402
  2. AZATHIOPRINE [Suspect]
     Route: 048
     Dates: start: 20090313, end: 20090403
  3. CALCIUM CARBONATE AND CHOLECALCIFEROL [Suspect]
     Route: 048
     Dates: start: 20090313, end: 20090403
  4. MONTELUKAST SODIUM [Concomitant]
     Route: 048
  5. LERCANIDIPINE HYDROCHLORIDE [Concomitant]
     Route: 065
  6. CIFENLINE SUCCINATE [Concomitant]
     Route: 065
  7. POTASSIUM CHLORIDE [Concomitant]
     Route: 065
  8. LANSOPRAZOLE [Concomitant]
     Route: 065

REACTIONS (1)
  - LEUKOCYTOCLASTIC VASCULITIS [None]
